FAERS Safety Report 9060161 (Version 1)
Quarter: 2013Q1

REPORT INFORMATION
  Report Type: Spontaneous
  Country: US (occurrence: None)
  Receive Date: 20130118
  Receipt Date: 20130118
  Transmission Date: 20140127
  Serious: Yes (Death)
  Sender: FDA-Public Use
  Company Number: AUR-APL-2013-00418

PATIENT
  Age: 38 Year
  Sex: Male

DRUGS (7)
  1. AMLODIPINE (AMLODIPINE) [Suspect]
     Indication: PRODUCT USED FOR UNKNOWN INDICATION
     Route: 048
  2. VENLAFAXINE [Suspect]
  3. ALPRAZOLAM (ALPRAZOLAM) [Suspect]
  4. ACETAMINOPHEN\HYDROCODONE [Suspect]
  5. HALOPERIDOL [Suspect]
  6. TRIAMTERENE [Suspect]
  7. DICLOFENAC [Suspect]

REACTIONS (2)
  - Toxicity to various agents [None]
  - Completed suicide [None]
